FAERS Safety Report 18041137 (Version 1)
Quarter: 2020Q3

REPORT INFORMATION
  Report Type: Spontaneous
  Country: CA (occurrence: CA)
  Receive Date: 20200718
  Receipt Date: 20200718
  Transmission Date: 20201103
  Serious: Yes (Other)
  Sender: FDA-Public Use
  Company Number: NVSC2020CA200774

PATIENT
  Age: 50 Year
  Sex: Female

DRUGS (2)
  1. PREDNISONE. [Suspect]
     Active Substance: PREDNISONE
     Dosage: 10 MG, QD
     Route: 065
  2. PREDNISONE. [Suspect]
     Active Substance: PREDNISONE
     Indication: COMPLEX REGIONAL PAIN SYNDROME
     Dosage: IN ESCALATING DOSES, UP TO 95 MG A DAY
     Route: 065

REACTIONS (16)
  - Cellulitis [Unknown]
  - Glucose tolerance impaired [Unknown]
  - Hyperlipidaemia [Unknown]
  - Skin disorder [Unknown]
  - Contusion [Unknown]
  - Herpes zoster [Unknown]
  - Oral herpes [Unknown]
  - Product use in unapproved indication [Unknown]
  - Cataract [Unknown]
  - Weight increased [Unknown]
  - Infection susceptibility increased [Unknown]
  - Bone density decreased [Unknown]
  - Purpura [Unknown]
  - Insomnia [Unknown]
  - Hypertension [Unknown]
  - Body tinea [Unknown]
